FAERS Safety Report 7609173-0 (Version None)
Quarter: 2011Q3

REPORT INFORMATION
  Report Type: 
  Country: None (occurrence: None)
  Receive Date: 20110713
  Receipt Date: 20110713
  Transmission Date: 20111222
  Serious: Yes (Hospitalization)
  Sender: FDA-Public Use
  Company Number: None

PATIENT
  Age: 47 Year
  Sex: Male
  Weight: 80 kg

DRUGS (6)
  1. MITOXANTRONE [Suspect]
     Indication: ACUTE MYELOID LEUKAEMIA
     Dosage: 8MG/M2/QD X5DOSES DAYS 4-8
     Dates: start: 20110528, end: 20110601
  2. PLERIXAFOR AMD [Suspect]
  3. NEUPOGEN [Suspect]
     Indication: ACUTE MYELOID LEUKAEMIA
     Dosage: 10MCG/KG SQ QD X8DOSES
     Route: 058
     Dates: start: 20110525, end: 20110601
  4. PLERIXAFOR AMD [Suspect]
     Indication: ACUTE MYELOID LEUKAEMIA
     Dosage: 320 MCG/KG/D IV QD X 6 DOSES DAYS 3-8
     Route: 042
     Dates: start: 20110530, end: 20110601
  5. ETOPOSIDE [Suspect]
     Indication: ACUTE MYELOID LEUKAEMIA
     Dosage: 100 MG/M2/QD X5DOSES DAYS 4-8
     Dates: start: 20110528, end: 20110601
  6. CYTARABINE [Suspect]
     Indication: ACUTE MYELOID LEUKAEMIA
     Dosage: 1000MG/M2/QD X5DOSES DAYS 4-8
     Dates: start: 20110528, end: 20110601

REACTIONS (4)
  - PERIRECTAL ABSCESS [None]
  - NEOPLASM RECURRENCE [None]
  - ACUTE MYELOID LEUKAEMIA [None]
  - FEBRILE NEUTROPENIA [None]
